FAERS Safety Report 9813050 (Version 2)
Quarter: 2014Q1

REPORT INFORMATION
  Report Type: Spontaneous
  Country: FR (occurrence: FR)
  Receive Date: 20140113
  Receipt Date: 20140113
  Transmission Date: 20141002
  Serious: Yes (Hospitalization)
  Sender: FDA-Public Use
  Company Number: FR-PFIZER INC-2013294488

PATIENT
  Age: 16 Year
  Sex: Male
  Weight: 99 kg

DRUGS (1)
  1. NONACOG ALFA [Suspect]
     Indication: HAEMOPHILIA
     Dosage: 6000 IU, AS NEEDED
     Route: 042
     Dates: start: 20060213

REACTIONS (1)
  - Head injury [Recovered/Resolved]
